FAERS Safety Report 10691046 (Version 1)
Quarter: 2015Q1

REPORT INFORMATION
  Report Type: Spontaneous
  Country: US (occurrence: None)
  Receive Date: 20150102
  Receipt Date: 20150102
  Transmission Date: 20150720
  Serious: Yes (Other)
  Sender: FDA-Public Use
  Company Number: 0018848245A

PATIENT
  Age: 22 Year
  Sex: Female

DRUGS (3)
  1. PROACTIV PLUS COMPLEXION PERFECTING HYDRATOR [Suspect]
     Active Substance: SALICYLIC ACID
     Indication: ACNE
     Dosage: ONCE DAILY, DERMAL?
     Route: 023
     Dates: start: 201405
  2. PROACTIV PLUS PORE TARGETING TREATMENT [Suspect]
     Active Substance: BENZOYL PEROXIDE
     Indication: ACNE
     Dosage: ONCE DAILY, DERMAL
     Route: 023
     Dates: start: 201405
  3. PROACTIVPLUS SKIN SMOOTHING EXFOLIATOR [Suspect]
     Active Substance: BENZOYL PEROXIDE
     Indication: ACNE
     Route: 023
     Dates: start: 201405

REACTIONS (5)
  - Erythema [None]
  - Application site pruritus [None]
  - Application site swelling [None]
  - Swelling face [None]
  - Application site exfoliation [None]

NARRATIVE: CASE EVENT DATE: 201405
